FAERS Safety Report 20719320 (Version 3)
Quarter: 2022Q2

REPORT INFORMATION
  Report Type: Report from Study
  Country: FR (occurrence: FR)
  Receive Date: 20220418
  Receipt Date: 20220502
  Transmission Date: 20220721
  Serious: Yes (Death, Hospitalization, Other)
  Sender: FDA-Public Use
  Company Number: FR-GLAXOSMITHKLINE-FR2022EME065473

PATIENT
  Age: 75 Year
  Sex: Female
  Weight: 64 kg

DRUGS (6)
  1. BELANTAMAB MAFODOTIN [Suspect]
     Active Substance: BELANTAMAB MAFODOTIN
     Indication: Plasma cell myeloma
     Dosage: 2.5 MG/KG
     Route: 042
     Dates: start: 20200514
  2. BELANTAMAB MAFODOTIN [Suspect]
     Active Substance: BELANTAMAB MAFODOTIN
     Dosage: 1.9 MG/KG, EVERY 3 WEEKS
     Route: 042
     Dates: start: 20200605
  3. PRESERVATIVE-FREE ARTIFICIAL TEARS [Concomitant]
     Indication: Product used for unknown indication
  4. VELCADE [Concomitant]
     Active Substance: BORTEZOMIB
     Indication: Product used for unknown indication
     Dosage: UNK
     Dates: start: 20200717, end: 20201201
  5. REVLIMID [Concomitant]
     Active Substance: LENALIDOMIDE
     Indication: Product used for unknown indication
     Dosage: UNK
     Dates: start: 20200717, end: 20201201
  6. DEXAMETHASONE [Concomitant]
     Active Substance: DEXAMETHASONE
     Indication: Product used for unknown indication
     Dosage: UNK
     Dates: start: 20200717, end: 20201201

REACTIONS (8)
  - Death [Fatal]
  - Pneumonia [Recovered/Resolved]
  - Acute kidney injury [Recovered/Resolved]
  - Inflammation [Recovered/Resolved]
  - Hypercalcaemia [Not Recovered/Not Resolved]
  - General physical health deterioration [Recovered/Resolved]
  - Keratopathy [Unknown]
  - Keratitis [Unknown]

NARRATIVE: CASE EVENT DATE: 20200605
